FAERS Safety Report 8158335-5 (Version None)
Quarter: 2012Q1

REPORT INFORMATION
  Report Type: 
  Country: None (occurrence: None)
  Receive Date: 20120223
  Receipt Date: 20120214
  Transmission Date: 20120608
  Serious: Yes (Hospitalization, Other)
  Sender: FDA-Public Use
  Company Number: GB-ACCORD-004120

PATIENT
  Age: 37 Year
  Sex: Male

DRUGS (4)
  1. MYCOPHENOLATE MOFETIL [Suspect]
     Indication: RENAL TRANSPLANT
     Route: 065
  2. BASILIXIMAB [Concomitant]
     Indication: RENAL TRANSPLANT
     Dosage: LOW-DOSE (THROUGH CONCENTRATION 3-6 MIKROGRAM/L)
     Route: 042
  3. TACROLIMUS [Suspect]
     Indication: RENAL TRANSPLANT
     Dosage: LOW-DOSE (THROUGH CONCENTRATION 3-6 MICROGRAMS/L)
     Route: 065
     Dates: start: 20060101, end: 20080101
  4. PREDNISOLONE [Suspect]
     Indication: RENAL TRANSPLANT
     Route: 065

REACTIONS (2)
  - RENAL GRAFT LOSS [None]
  - HAEMOLYTIC URAEMIC SYNDROME [None]
